FAERS Safety Report 6399244-1 (Version None)
Quarter: 2009Q4

REPORT INFORMATION
  Report Type: 
  Country: None (occurrence: None)
  Receive Date: 20091014
  Receipt Date: 20071112
  Transmission Date: 20100525
  Serious: Yes (Other)
  Sender: FDA-Public Use
  Company Number: US-ASTRAZENECA-2007UW03828

PATIENT
  Age: 18110 Day
  Sex: Female
  Weight: 137.4 kg

DRUGS (5)
  1. SEROQUEL [Suspect]
     Indication: SLEEP DISORDER
     Route: 048
     Dates: start: 20001201, end: 20060415
  2. SEROQUEL [Suspect]
     Dosage: 300 MG,FOUR QHS
     Route: 048
     Dates: start: 20051122
  3. ATIVAN [Concomitant]
     Indication: SLEEP DISORDER
     Dates: start: 20041230
  4. PAXIL CR [Concomitant]
     Dosage: 37.5 MG, TWO TABLETS QHS
     Route: 048
     Dates: start: 20051122
  5. AMBIEN [Concomitant]
     Dosage: 12.5 MG,QHS, PRN
     Route: 048
     Dates: start: 20070719

REACTIONS (7)
  - DIABETES MELLITUS [None]
  - DIABETES MELLITUS INADEQUATE CONTROL [None]
  - DIABETIC EYE DISEASE [None]
  - DIABETIC KETOACIDOSIS [None]
  - TYPE 1 DIABETES MELLITUS [None]
  - TYPE 2 DIABETES MELLITUS [None]
  - VISION BLURRED [None]
